APPROVED DRUG PRODUCT: PROCAINAMIDE HYDROCHLORIDE
Active Ingredient: PROCAINAMIDE HYDROCHLORIDE
Strength: 500MG
Dosage Form/Route: TABLET, EXTENDED RELEASE;ORAL
Application: A088534 | Product #001
Applicant: WATSON LABORATORIES INC
Approved: Dec 3, 1984 | RLD: No | RS: No | Type: DISCN